FAERS Safety Report 7155801-6 (Version None)
Quarter: 2010Q4

REPORT INFORMATION
  Report Type: 
  Country: None (occurrence: None)
  Receive Date: 20101123
  Receipt Date: 20100924
  Transmission Date: 20110411
  Serious: No
  Sender: FDA-Public Use
  Company Number: 009049

PATIENT
  Sex: Female

DRUGS (4)
  1. CIMZIA [Suspect]
     Indication: CROHN'S DISEASE
     Dosage: (400 MG 1X/2 WEEK, SUBCUTANEOUS)
     Route: 058
     Dates: start: 20100113
  2. CIMZIA [Suspect]
     Indication: CROHN'S DISEASE
     Dosage: (400 MG 1X/2 WEEK, SUBCUTANEOUS)
     Route: 058
     Dates: start: 20100113
  3. CIMZIA [Suspect]
  4. LEVSIN PB [Suspect]

REACTIONS (5)
  - ABDOMINAL PAIN [None]
  - DIARRHOEA [None]
  - FATIGUE [None]
  - FREQUENT BOWEL MOVEMENTS [None]
  - RASH ERYTHEMATOUS [None]
